FAERS Safety Report 16119265 (Version 1)
Quarter: 2019Q1

REPORT INFORMATION
  Report Type: Spontaneous
  Country: FR (occurrence: FR)
  Receive Date: 20190326
  Receipt Date: 20190326
  Transmission Date: 20190418
  Serious: Yes (Hospitalization)
  Sender: FDA-Public Use
  Company Number: FR-PFIZER INC-2019123744

PATIENT
  Age: 70 Year
  Sex: Male

DRUGS (13)
  1. VALSARTAN. [Concomitant]
     Active Substance: VALSARTAN
     Dosage: UNK
  2. VERSATIS [Concomitant]
     Active Substance: LIDOCAINE
     Dosage: UNK
  3. ZYVOXID [Suspect]
     Active Substance: LINEZOLID
     Indication: ESCHAR
     Dosage: 600 MG, 1X/DAY
     Route: 048
     Dates: start: 20190130, end: 20190218
  4. AMLODIPINE [Concomitant]
     Active Substance: AMLODIPINE BESYLATE
     Dosage: UNK
  5. INNOHEP [Concomitant]
     Active Substance: TINZAPARIN SODIUM
     Dosage: UNK
  6. KETOCONAZOLE. [Concomitant]
     Active Substance: KETOCONAZOLE
     Dosage: UNK
  7. TAVANIC [Suspect]
     Active Substance: LEVOFLOXACIN
     Indication: ESCHAR
     Dosage: 500 MG, 1X/DAY
     Route: 048
     Dates: start: 20190130, end: 20190218
  8. XALACOM [Concomitant]
     Active Substance: LATANOPROST\TIMOLOL MALEATE
     Dosage: UNK
  9. DAFALGAN [Concomitant]
     Active Substance: ACETAMINOPHEN
     Dosage: UNK
  10. PANTOPRAZOLE [Concomitant]
     Active Substance: PANTOPRAZOLE
     Dosage: UNK
  11. METFORMIN [Concomitant]
     Active Substance: METFORMIN HYDROCHLORIDE
     Dosage: UNK
  12. HYDROCHLOROTHIAZIDE. [Concomitant]
     Active Substance: HYDROCHLOROTHIAZIDE
     Dosage: UNK
  13. ARTISIAL [Concomitant]
     Active Substance: CALCIUM CHLORIDE\MAGNESIUM CHLORIDE\POTASSIUM CHLORIDE\POTASSIUM PHOSPHATE, DIBASIC\POTASSIUM PHOSPHATE, MONOBASIC\SODIUM CHLORIDE
     Dosage: UNK

REACTIONS (4)
  - Product use in unapproved indication [Unknown]
  - Acute kidney injury [Recovering/Resolving]
  - Thrombocytopenia [Recovering/Resolving]
  - General physical health deterioration [Recovered/Resolved]

NARRATIVE: CASE EVENT DATE: 20190131
